FAERS Safety Report 25902785 (Version 2)
Quarter: 2025Q4

REPORT INFORMATION
  Report Type: Spontaneous
  Country: US (occurrence: US)
  Receive Date: 20251009
  Receipt Date: 20251014
  Transmission Date: 20260118
  Serious: Yes (Disabling, Other)
  Sender: PFIZER
  Company Number: US-PFIZER INC-8525

PATIENT
  Age: 34 Year
  Sex: Female
  Weight: 60 kg

DRUGS (1)
  1. MEPERIDINE HYDROCHLORIDE [Suspect]
     Active Substance: MEPERIDINE HYDROCHLORIDE
     Indication: Analgesic therapy
     Dosage: 15 MG EVERY 6 MINUTES AS NEEDED
     Route: 065

REACTIONS (2)
  - Acetabulum fracture [Recovered/Resolved]
  - Generalised tonic-clonic seizure [Recovered/Resolved]
